FAERS Safety Report 13054655 (Version 2)
Quarter: 2016Q4

REPORT INFORMATION
  Report Type: Report from Study
  Country: None (occurrence: GB)
  Receive Date: 20161222
  Receipt Date: 20161226
  Transmission Date: 20170207
  Serious: Yes (Hospitalization)
  Sender: FDA-Public Use
  Company Number: GB-ABBVIE-16K-167-1812651-00

PATIENT
  Age: 45 Year
  Sex: Male
  Weight: 52 kg

DRUGS (5)
  1. OMEPRAZOLE. [Concomitant]
     Active Substance: OMEPRAZOLE
     Indication: PRODUCT USED FOR UNKNOWN INDICATION
     Dates: start: 20030615, end: 20150615
  2. LANSOPRAZOLE. [Concomitant]
     Active Substance: LANSOPRAZOLE
     Indication: PRODUCT USED FOR UNKNOWN INDICATION
     Dates: start: 20150615
  3. WARFARIN [Concomitant]
     Active Substance: WARFARIN
     Indication: PRODUCT USED FOR UNKNOWN INDICATION
     Dates: start: 20020615
  4. SEASONAL FLU VACCINE [Concomitant]
     Indication: PRODUCT USED FOR UNKNOWN INDICATION
     Dates: start: 20131015
  5. HUMIRA [Suspect]
     Active Substance: ADALIMUMAB
     Indication: PSORIASIS
     Route: 058
     Dates: start: 20121116

REACTIONS (15)
  - Psoriatic arthropathy [Unknown]
  - Arthritis enteropathic [Unknown]
  - Gastritis [Unknown]
  - Essential hypertension [Unknown]
  - Arthritis enteropathic [Unknown]
  - Arthritis enteropathic [Unknown]
  - Acute kidney injury [Unknown]
  - Psoriatic arthropathy [Unknown]
  - Pneumonia [Unknown]
  - Arthritis enteropathic [Unknown]
  - Psoriatic arthropathy [Unknown]
  - Pelvi-ureteric obstruction [Unknown]
  - Psoriatic arthropathy [Unknown]
  - Renal failure [Unknown]
  - Hydronephrosis [Unknown]

NARRATIVE: CASE EVENT DATE: 20141208
